FAERS Safety Report 25492939 (Version 1)
Quarter: 2025Q2

REPORT INFORMATION
  Report Type: Spontaneous
  Country: US (occurrence: US)
  Receive Date: 20250630
  Receipt Date: 20250630
  Transmission Date: 20250717
  Serious: No
  Sender: UCB
  Company Number: US-UCBSA-2025006698

PATIENT
  Age: 10 Year
  Sex: Male

DRUGS (8)
  1. MIDAZOLAM [Suspect]
     Active Substance: MIDAZOLAM
     Indication: General anaesthesia
  2. MIDAZOLAM [Suspect]
     Active Substance: MIDAZOLAM
     Indication: Off label use
  3. LEVETIRACETAM [Suspect]
     Active Substance: LEVETIRACETAM
     Indication: Parietal lobe epilepsy
  4. LACOSAMIDE [Suspect]
     Active Substance: LACOSAMIDE
     Indication: Parietal lobe epilepsy
  5. FOSPHENYTOIN [Suspect]
     Active Substance: FOSPHENYTOIN
     Indication: Parietal lobe epilepsy
  6. TACROLIMUS [Concomitant]
     Active Substance: TACROLIMUS
     Indication: Immunosuppressant drug therapy
  7. ALEMTUZUMAB [Concomitant]
     Active Substance: ALEMTUZUMAB
     Indication: Immunosuppressant drug therapy
  8. KETAMINE [Concomitant]
     Active Substance: KETAMINE
     Indication: General anaesthesia

REACTIONS (2)
  - Off label use [Unknown]
  - Multiple-drug resistance [Unknown]
